FAERS Safety Report 24253536 (Version 1)
Quarter: 2024Q3

REPORT INFORMATION
  Report Type: Spontaneous
  Country: NL (occurrence: NL)
  Receive Date: 20240827
  Receipt Date: 20240827
  Transmission Date: 20241017
  Serious: Yes (Other)
  Sender: TEVA
  Company Number: None

PATIENT
  Age: 22 Year
  Sex: Female
  Weight: 52 kg

DRUGS (1)
  1. CIPROFLOXACIN [Suspect]
     Active Substance: CIPROFLOXACIN
     Indication: Urinary tract infection
     Dosage: 1 PIECE TWICE A DAY; CIPROFLOXACIN / BRAND NAME NOT SPECIFIED
     Route: 065
     Dates: start: 20240730, end: 20240801

REACTIONS (11)
  - Hallucination [Recovering/Resolving]
  - Paraesthesia [Recovering/Resolving]
  - Pruritus [Recovering/Resolving]
  - Neuralgia [Recovering/Resolving]
  - Muscular weakness [Recovering/Resolving]
  - Brain fog [Recovering/Resolving]
  - Muscle spasms [Recovering/Resolving]
  - Depressed mood [Recovering/Resolving]
  - Paranoia [Recovering/Resolving]
  - Headache [Recovering/Resolving]
  - Delusion [Recovering/Resolving]
